FAERS Safety Report 16475074 (Version 1)
Quarter: 2019Q2

REPORT INFORMATION
  Report Type: Spontaneous
  Country: SE (occurrence: SE)
  Receive Date: 20190625
  Receipt Date: 20190625
  Transmission Date: 20190711
  Serious: Yes (Death, Other)
  Sender: FDA-Public Use
  Company Number: SE-009507513-1906SWE008501

PATIENT
  Sex: Female

DRUGS (3)
  1. KEYTRUDA [Suspect]
     Active Substance: PEMBROLIZUMAB
  2. ALIMTA [Suspect]
     Active Substance: PEMETREXED DISODIUM
  3. CISPLATIN. [Suspect]
     Active Substance: CISPLATIN

REACTIONS (2)
  - Pericardial effusion [Fatal]
  - Hydrothorax [Fatal]
